FAERS Safety Report 11170815 (Version 1)
Quarter: 2015Q2

REPORT INFORMATION
  Report Type: Spontaneous
  Country: US (occurrence: None)
  Receive Date: 20150515
  Receipt Date: 20150515
  Transmission Date: 20150821
  Serious: Yes (Hospitalization, Other)
  Sender: FDA-Public Use
  Company Number: 2014015523

PATIENT
  Age: 27 Year
  Sex: Female
  Weight: 68.4 kg

DRUGS (7)
  1. HYDROCODONE (HYDROCODONE BITARTRATE) [Concomitant]
     Active Substance: HYDROCODONE BITARTRATE
  2. DEPO PROVERA (MEDROXYPROGESTERONE ACETATE) [Concomitant]
  3. CIMZIA [Suspect]
     Active Substance: CERTOLIZUMAB PEGOL
     Indication: CROHN^S DISEASE
     Dosage: EV 4 WEEKS
     Route: 058
     Dates: start: 20141009, end: 20141015
  4. ZOFRAN (ONDANSETRON HYDROCHLORIDE) [Concomitant]
  5. ZOLOFT [Concomitant]
     Active Substance: SERTRALINE HYDROCHLORIDE
  6. ATIVAN [Concomitant]
     Active Substance: LORAZEPAM
  7. TORADOL [Concomitant]
     Active Substance: KETOROLAC TROMETHAMINE

REACTIONS (4)
  - Skin lesion [None]
  - Exposure during pregnancy [None]
  - Inappropriate schedule of drug administration [None]
  - Small intestinal obstruction [None]

NARRATIVE: CASE EVENT DATE: 20141009
